FAERS Safety Report 8436472-5 (Version None)
Quarter: 2012Q2

REPORT INFORMATION
  Report Type: 
  Country: None (occurrence: None)
  Receive Date: 20120614
  Receipt Date: 20120605
  Transmission Date: 20120825
  Serious: Yes (Life-Threatening, Hospitalization, Other)
  Sender: FDA-Public Use
  Company Number: US-BAYER-2012-053262

PATIENT
  Age: 38 Year
  Sex: Female
  Weight: 77.778 kg

DRUGS (8)
  1. YAZ [Suspect]
     Indication: CONTRACEPTION
     Dosage: UNK
     Dates: start: 20071012, end: 20091229
  2. YASMIN [Suspect]
     Indication: HEADACHE
     Dosage: UNK
     Dates: start: 20071001
  3. DROSPIRENONE AND ETHINYL ESTRADIOL [Suspect]
     Indication: CONTRACEPTION
     Dosage: UNK
     Dates: start: 20091230, end: 20110213
  4. DROSPIRENONE AND ETHINYL ESTRADIOL [Suspect]
     Indication: MIGRAINE
  5. YAZ [Suspect]
     Indication: MIGRAINE
  6. SYNTHROID [Concomitant]
     Indication: HYPOTHYROIDISM
     Dosage: 25 MCG/24HR, DAILY
     Route: 048
     Dates: start: 20040101
  7. CITALOPRAM HYDROBROMIDE [Concomitant]
     Indication: DEPRESSION
     Dosage: UNK
     Dates: start: 20100201
  8. FLINTSTONES [Concomitant]
     Dosage: UNK
     Dates: start: 20110103

REACTIONS (9)
  - PULMONARY EMBOLISM [None]
  - DISCOMFORT [None]
  - PAIN [None]
  - CHEST DISCOMFORT [None]
  - INJURY [None]
  - DIZZINESS [None]
  - POST THROMBOTIC SYNDROME [None]
  - DEEP VEIN THROMBOSIS [None]
  - DYSPNOEA [None]
